FAERS Safety Report 20467013 (Version 1)
Quarter: 2022Q1

REPORT INFORMATION
  Report Type: Spontaneous
  Country: US (occurrence: US)
  Receive Date: 20220214
  Receipt Date: 20220214
  Transmission Date: 20220424
  Serious: Yes (Hospitalization, Other)
  Sender: FDA-Public Use
  Company Number: US-MLMSERVICE-20220126-3336859-1

PATIENT
  Age: 68 Year
  Sex: Male

DRUGS (2)
  1. ACETAMINOPHEN [Suspect]
     Active Substance: ACETAMINOPHEN
     Indication: Back pain
     Dosage: PATIENT WAS PRESCRIBED ACETAMINOPHEN 325 MG AS NEEDED, WHICH PATIENT DESCRIBED TAKING 1 TO 2 PILL
     Route: 065
  2. ACETAMINOPHEN [Suspect]
     Active Substance: ACETAMINOPHEN
     Indication: Back pain
     Dosage: PATIENT WAS PRESCRIBED ACETAMINOPHEN 325 MG AS NEEDED, WHICH PATIENT DESCRIBED TAKING 1 TO 2 PIL...
     Route: 065

REACTIONS (5)
  - Metabolic acidosis [Recovered/Resolved]
  - Hypernatraemia [Recovered/Resolved]
  - Pyroglutamate increased [Recovered/Resolved]
  - Acute kidney injury [Recovered/Resolved]
  - Toxicity to various agents [Recovered/Resolved]
